FAERS Safety Report 5675411-7 (Version None)
Quarter: 2008Q1

REPORT INFORMATION
  Report Type: 
  Country: None (occurrence: None)
  Receive Date: 20080320
  Receipt Date: 20080319
  Transmission Date: 20080703
  Serious: Yes (Other)
  Sender: FDA-Public Use
  Company Number: JP-MERCK-0511USA00664

PATIENT
  Age: 71 Year
  Sex: Female
  Weight: 30 kg

DRUGS (12)
  1. STROMECTOL [Suspect]
     Indication: ACARODERMATITIS
     Route: 048
     Dates: start: 20051017, end: 20051017
  2. POLARAMINE [Concomitant]
     Indication: PRURITUS
     Route: 048
  3. ALDACTONE [Concomitant]
     Indication: HEPATIC ENCEPHALOPATHY
     Route: 048
  4. LASIX [Concomitant]
     Indication: HEPATIC ENCEPHALOPATHY
     Route: 048
  5. FAMOTIDINE [Concomitant]
     Indication: HEPATIC ENCEPHALOPATHY
     Route: 048
  6. LACTULOSE [Concomitant]
     Indication: HEPATIC ENCEPHALOPATHY
     Route: 065
  7. MUCOSTA [Concomitant]
     Indication: HEPATIC ENCEPHALOPATHY
     Route: 048
  8. SYMMETREL [Concomitant]
     Indication: HEPATIC ENCEPHALOPATHY
     Route: 048
  9. LIVACT [Concomitant]
     Indication: HEPATIC ENCEPHALOPATHY
     Route: 048
     Dates: start: 20051020
  10. [COMPOSITION UNSPECIFIED] [Concomitant]
     Indication: HEPATIC ENCEPHALOPATHY
     Route: 042
     Dates: start: 20051019
  11. SALICYLIC ACID AND SULFUR [Concomitant]
     Indication: ACARODERMATITIS
     Route: 065
  12. EURAX [Concomitant]
     Indication: ACARODERMATITIS
     Route: 065

REACTIONS (1)
  - LIVER DISORDER [None]
